FAERS Safety Report 4577066-1 (Version None)
Quarter: 2005Q1

REPORT INFORMATION
  Report Type: 
  Country: None (occurrence: None)
  Receive Date: 20050210
  Receipt Date: 20041119
  Transmission Date: 20050727
  Serious: Yes (Hospitalization)
  Sender: FDA-Public Use
  Company Number: DE-MERCK-0411DEU00412

PATIENT
  Age: 64 Year
  Sex: Female
  Weight: 100 kg

DRUGS (3)
  1. VIOXX [Suspect]
     Indication: ARTHRALGIA
     Route: 048
     Dates: start: 20000101, end: 20040901
  2. PHENPROCOUMON [Concomitant]
     Route: 065
     Dates: start: 19930101
  3. LOSARTAN POTASSIUM [Concomitant]
     Route: 065

REACTIONS (12)
  - ABDOMINAL PAIN UPPER [None]
  - ANGINA PECTORIS [None]
  - ATRIAL FIBRILLATION [None]
  - BLOOD PRESSURE INCREASED [None]
  - CHEST DISCOMFORT [None]
  - DYSPHAGIA [None]
  - DYSPNOEA [None]
  - ECG SIGNS OF MYOCARDIAL ISCHAEMIA [None]
  - GASTRITIS [None]
  - PALPITATIONS [None]
  - REFLUX OESOPHAGITIS [None]
  - TACHYARRHYTHMIA [None]
